FAERS Safety Report 24601612 (Version 1)
Quarter: 2024Q4

REPORT INFORMATION
  Report Type: Spontaneous
  Country: US (occurrence: US)
  Receive Date: 20241111
  Receipt Date: 20241111
  Transmission Date: 20250114
  Serious: Yes (Other)
  Sender: CSL BEHRING
  Company Number: US-BEH-2024183723

PATIENT
  Age: 18 Year
  Sex: Male

DRUGS (8)
  1. IDELVION [Suspect]
     Active Substance: COAGULATION FACTOR IX RECOMBINANT HUMAN
     Indication: Factor IX deficiency
     Dosage: 500 IU
     Route: 042
     Dates: start: 202407
  2. IDELVION [Suspect]
     Active Substance: COAGULATION FACTOR IX RECOMBINANT HUMAN
     Indication: Factor IX deficiency
     Dosage: 500 IU
     Route: 042
     Dates: start: 202407
  3. IDELVION [Suspect]
     Active Substance: COAGULATION FACTOR IX RECOMBINANT HUMAN
     Dosage: 5000 IU, (4500-5500) EVERY 14 DAYS AS NEEDED (PRN)
     Route: 042
  4. IDELVION [Suspect]
     Active Substance: COAGULATION FACTOR IX RECOMBINANT HUMAN
     Dosage: 5000 IU, (4500-5500) EVERY 14 DAYS AS NEEDED (PRN)
     Route: 042
  5. IDELVION [Suspect]
     Active Substance: COAGULATION FACTOR IX RECOMBINANT HUMAN
     Dosage: 3500 IU (STRENGTH: 5000)
     Route: 042
     Dates: start: 202407
  6. IDELVION [Suspect]
     Active Substance: COAGULATION FACTOR IX RECOMBINANT HUMAN
     Dosage: 3500 IU (STRENGTH: 5000)
     Route: 042
     Dates: start: 202407
  7. IDELVION [Suspect]
     Active Substance: COAGULATION FACTOR IX RECOMBINANT HUMAN
     Dosage: 1000 IU (STRENGTH: 1000)
     Route: 042
     Dates: start: 202407
  8. IDELVION [Suspect]
     Active Substance: COAGULATION FACTOR IX RECOMBINANT HUMAN
     Dosage: 1000 IU (STRENGTH: 1000)
     Route: 042
     Dates: start: 202407

REACTIONS (2)
  - Haemorrhage [Unknown]
  - Swelling [Unknown]

NARRATIVE: CASE EVENT DATE: 20241026
